FAERS Safety Report 15323163 (Version 4)
Quarter: 2019Q3

REPORT INFORMATION
  Report Type: Report from Study
  Country: US (occurrence: US)
  Receive Date: 20180827
  Receipt Date: 20190919
  Transmission Date: 20191004
  Serious: Yes (Hospitalization, Other)
  Sender: FDA-Public Use
  Company Number: US-ARIAD-2017US009188

PATIENT
  Age: 53 Year
  Sex: Female

DRUGS (6)
  1. HYDROXYUREA. [Concomitant]
     Active Substance: HYDROXYUREA
     Dosage: UNK
  2. LOSARTAN. [Concomitant]
     Active Substance: LOSARTAN
     Dosage: UNK
  3. PRILOSEC [Concomitant]
     Active Substance: OMEPRAZOLE MAGNESIUM
     Dosage: UNK
  4. PONATINIB [Suspect]
     Active Substance: PONATINIB
     Indication: CHRONIC MYELOID LEUKAEMIA
     Dosage: 45 MILLIGRAM, QD
     Route: 048
     Dates: start: 20161222
  5. CORTISONE [Concomitant]
     Active Substance: CORTISONE
     Dosage: UNK
  6. TRAMADOL. [Concomitant]
     Active Substance: TRAMADOL
     Dosage: UNK

REACTIONS (32)
  - Pain in extremity [Unknown]
  - Neutrophil count increased [Unknown]
  - Cardiac murmur [Unknown]
  - Arthritis [Unknown]
  - Diarrhoea [Unknown]
  - Acne [Recovering/Resolving]
  - Blood glucose increased [Unknown]
  - Rash [Unknown]
  - Pyrexia [Unknown]
  - Platelet count increased [Unknown]
  - Bone pain [Unknown]
  - Cellulitis [Unknown]
  - Myalgia [Unknown]
  - Alopecia [Unknown]
  - Feeling abnormal [Unknown]
  - Chest pain [Unknown]
  - Eye disorder [Unknown]
  - Clostridium difficile colitis [Unknown]
  - Nausea [Unknown]
  - Pain [Unknown]
  - Musculoskeletal pain [Unknown]
  - Abdominal pain upper [Unknown]
  - Clavicle fracture [Unknown]
  - Pancreatitis [Recovered/Resolved]
  - Barrett^s oesophagus [Unknown]
  - Dizziness [Unknown]
  - Hypertension [Unknown]
  - White blood cell count increased [Unknown]
  - Ligament sprain [Unknown]
  - Influenza like illness [Unknown]
  - Arthralgia [Unknown]
  - Sinus congestion [Unknown]

NARRATIVE: CASE EVENT DATE: 20180920
